FAERS Safety Report 4505895-9 (Version None)
Quarter: 2004Q4

REPORT INFORMATION
  Report Type: 
  Country: None (occurrence: None)
  Receive Date: 20041025
  Receipt Date: 20040708
  Transmission Date: 20050328
  Serious: Yes (Hospitalization)
  Sender: FDA-Public Use
  Company Number: US-JNJFOC-20040300762

PATIENT
  Age: 69 Year
  Sex: Male
  Weight: 79.3795 kg

DRUGS (3)
  1. REMICADE [Suspect]
     Indication: RHEUMATOID ARTHRITIS
     Dosage: INTRAVENOUS
     Route: 042
  2. GLUCOTROL [Concomitant]
  3. POTASSIUM ACETATE [Concomitant]

REACTIONS (6)
  - ASTHENIA [None]
  - CARDIAC FAILURE [None]
  - CONDITION AGGRAVATED [None]
  - INFECTION [None]
  - PAIN [None]
  - RENAL FAILURE [None]
